FAERS Safety Report 7464328-3 (Version None)
Quarter: 2011Q2

REPORT INFORMATION
  Report Type: 
  Country: None (occurrence: None)
  Receive Date: 20110509
  Receipt Date: 20110429
  Transmission Date: 20111010
  Serious: Yes (Hospitalization)
  Sender: FDA-Public Use
  Company Number: US-BIOGENIDEC-2011BI016174

PATIENT
  Age: 51 Year
  Sex: Female

DRUGS (1)
  1. AVONEX [Suspect]
     Indication: MULTIPLE SCLEROSIS
     Route: 030
     Dates: start: 20001201

REACTIONS (6)
  - ARTHRALGIA [None]
  - CARPAL TUNNEL SYNDROME [None]
  - TENDONITIS [None]
  - MULTIPLE SCLEROSIS RELAPSE [None]
  - ROTATOR CUFF SYNDROME [None]
  - GASTROENTERITIS VIRAL [None]
